FAERS Safety Report 9221186 (Version 1)
Quarter: 2013Q2

REPORT INFORMATION
  Report Type: Spontaneous
  Country: US (occurrence: US)
  Receive Date: 20130410
  Receipt Date: 20130410
  Transmission Date: 20140414
  Serious: Yes (Other)
  Sender: FDA-Public Use
  Company Number: US-BRISTOL-MYERS SQUIBB COMPANY-18736629

PATIENT
  Age: 57 Year
  Sex: Female
  Weight: 102.04 kg

DRUGS (6)
  1. BYDUREON [Suspect]
     Dosage: FORMULATION:BYDUREON INJECTION,10MAR2013, 17MAR2013 AND 24MAR2013?LAST INJ:31MAR13
     Dates: start: 20130224
  2. METFORMIN HCL [Suspect]
     Dosage: 1000MG/BID TILL 27MAR13,1000QAM, FROM28MAR13
     Route: 048
  3. GLIMEPIRIDE [Suspect]
     Dosage: 4MG/BID TILL 27MAR13,4MG/QD FROM 28MAR13
     Route: 048
  4. DIOVAN HCT [Concomitant]
     Dosage: 1DF= 80/12.5MG
     Route: 048
  5. OMEPRAZOLE [Concomitant]
  6. LEVEMIR [Concomitant]
     Dosage: 1DF =60 UNITS?SUQ INJ
     Route: 058

REACTIONS (8)
  - Weight decreased [Unknown]
  - Vomiting [Recovering/Resolving]
  - Nausea [Recovering/Resolving]
  - Eructation [Recovering/Resolving]
  - Abdominal discomfort [Recovering/Resolving]
  - Decreased appetite [Unknown]
  - Dizziness [Recovering/Resolving]
  - Parosmia [Recovering/Resolving]
